FAERS Safety Report 20216139 (Version 1)
Quarter: 2021Q4

REPORT INFORMATION
  Report Type: Spontaneous
  Country: FR (occurrence: FR)
  Receive Date: 20211222
  Receipt Date: 20211222
  Transmission Date: 20220303
  Serious: Yes (Congenital Anomaly)
  Sender: FDA-Public Use
  Company Number: None

PATIENT
  Age: 23 Year
  Sex: Female

DRUGS (1)
  1. ITRACONAZOLE [Suspect]
     Active Substance: ITRACONAZOLE
     Indication: Hyper IgE syndrome
     Dosage: UNK
     Route: 048
     Dates: start: 202105

REACTIONS (4)
  - Congenital central nervous system anomaly [Not Recovered/Not Resolved]
  - Single umbilical artery [Not Recovered/Not Resolved]
  - Hypoplastic left heart syndrome [Not Recovered/Not Resolved]
  - Duodenal atresia [Not Recovered/Not Resolved]
